FAERS Safety Report 17302311 (Version 2)
Quarter: 2020Q1

REPORT INFORMATION
  Report Type: Spontaneous
  Country: JP (occurrence: JP)
  Receive Date: 20200122
  Receipt Date: 20200327
  Transmission Date: 20200409
  Serious: Yes (Other)
  Sender: FDA-Public Use
  Company Number: NVSJ2019JP003159

PATIENT
  Sex: Female

DRUGS (4)
  1. CONTOMIN [Suspect]
     Active Substance: CHLORPROMAZINE
     Indication: SCHIZOPHRENIA
     Dosage: UNK
     Route: 065
  2. TEGRETOL [Suspect]
     Active Substance: CARBAMAZEPINE
     Indication: SCHIZOPHRENIA
     Dosage: 100 MG, QD
     Route: 048
  3. ZYPREXA [Concomitant]
     Active Substance: OLANZAPINE
     Indication: PRODUCT USED FOR UNKNOWN INDICATION
     Dosage: UNK
     Route: 065
  4. TEGRETOL [Suspect]
     Active Substance: CARBAMAZEPINE
     Dosage: 300 MG, QD
     Route: 048

REACTIONS (6)
  - Bedridden [Unknown]
  - Flashback [Unknown]
  - Weight increased [Unknown]
  - Head discomfort [Unknown]
  - Fatigue [Unknown]
  - Speech disorder [Unknown]
